FAERS Safety Report 9017519 (Version 2)
Quarter: 2013Q1

REPORT INFORMATION
  Report Type: Spontaneous
  Country: IE (occurrence: IE)
  Receive Date: 20130117
  Receipt Date: 20130211
  Transmission Date: 20140127
  Serious: Yes (Hospitalization)
  Sender: FDA-Public Use
  Company Number: IE-GALDERMA-IE13000075

PATIENT
  Age: 20 Year
  Sex: Male

DRUGS (5)
  1. ACNECIDE [Suspect]
     Indication: ACNE
     Dosage: 5%
     Route: 061
     Dates: start: 20121211, end: 20121212
  2. PIRITON [Concomitant]
     Indication: RASH
  3. PIRITON [Concomitant]
     Indication: PRURITUS
  4. LEVETIRACETAM [Concomitant]
     Indication: CONVULSION
     Dates: start: 20121023
  5. PANTUP [Concomitant]
     Indication: GASTRITIS PROPHYLAXIS
     Dates: start: 20121023

REACTIONS (3)
  - Dermatitis [Recovered/Resolved]
  - Erythema [Recovered/Resolved]
  - Drug ineffective [None]
